FAERS Safety Report 23085563 (Version 1)
Quarter: 2023Q4

REPORT INFORMATION
  Report Type: Spontaneous
  Country: GB (occurrence: GB)
  Receive Date: 20231019
  Receipt Date: 20231019
  Transmission Date: 20240109
  Serious: No
  Sender: FDA-Public Use
  Company Number: GB-JAZZ PHARMACEUTICALS-2023-GB-018923

PATIENT
  Age: 53 Year
  Sex: Female
  Weight: 91 kg

DRUGS (1)
  1. XYREM [Suspect]
     Active Substance: SODIUM OXYBATE
     Indication: Hypersomnia

REACTIONS (2)
  - Gait inability [Recovering/Resolving]
  - Off label use [Unknown]
